FAERS Safety Report 24569063 (Version 2)
Quarter: 2024Q4

REPORT INFORMATION
  Report Type: Spontaneous
  Country: PT (occurrence: PT)
  Receive Date: 20241031
  Receipt Date: 20241105
  Transmission Date: 20250114
  Serious: Yes (Hospitalization)
  Sender: PFIZER
  Company Number: PT-MLMSERVICE-20241021-PI231406-00206-1

PATIENT
  Age: 61 Year
  Sex: Male

DRUGS (2)
  1. LORAZEPAM [Suspect]
     Active Substance: LORAZEPAM
     Indication: Depression
     Dosage: UNK
  2. BIKTARVY [Concomitant]
     Active Substance: BICTEGRAVIR SODIUM\EMTRICITABINE\TENOFOVIR ALAFENAMIDE FUMARATE
     Indication: HIV infection
     Dosage: UNK

REACTIONS (2)
  - Hyponatraemia [Recovering/Resolving]
  - Off label use [Unknown]
